FAERS Safety Report 23189480 (Version 1)
Quarter: 2023Q4

REPORT INFORMATION
  Report Type: Spontaneous
  Country: ES (occurrence: ES)
  Receive Date: 20231116
  Receipt Date: 20231116
  Transmission Date: 20240109
  Serious: Yes (Hospitalization, Other)
  Sender: FDA-Public Use
  Company Number: ES-IHL-000396

PATIENT
  Age: 80 Year
  Sex: Male

DRUGS (1)
  1. OLMESARTAN MEDOXOMIL [Suspect]
     Active Substance: OLMESARTAN MEDOXOMIL
     Indication: Hypertension
     Route: 065

REACTIONS (4)
  - Hypovolaemic shock [Recovered/Resolved]
  - Acute kidney injury [Recovered/Resolved]
  - Sprue-like enteropathy [Recovered/Resolved]
  - Diarrhoea [Recovered/Resolved]
